FAERS Safety Report 14812681 (Version 2)
Quarter: 2018Q2

REPORT INFORMATION
  Report Type: Spontaneous
  Country: US (occurrence: US)
  Receive Date: 20180425
  Receipt Date: 20180608
  Transmission Date: 20180711
  Serious: Yes (Hospitalization, Other)
  Sender: FDA-Public Use
  Company Number: PHEH2018US015017

PATIENT
  Age: 59 Year
  Sex: Male
  Weight: 92 kg

DRUGS (2)
  1. VITAMIN D3 [Concomitant]
     Active Substance: CHOLECALCIFEROL
     Indication: PRODUCT USED FOR UNKNOWN INDICATION
     Dosage: 1 DF, QD
     Route: 065
  2. GILENYA [Suspect]
     Active Substance: FINGOLIMOD HYDROCHLORIDE
     Indication: RELAPSING-REMITTING MULTIPLE SCLEROSIS
     Dosage: 0.5 MG, QD
     Route: 048
     Dates: start: 20151215, end: 20180415

REACTIONS (11)
  - Tremor [Unknown]
  - Nausea [Unknown]
  - Lethargy [Unknown]
  - Gait disturbance [Unknown]
  - Insomnia [Unknown]
  - Hyperthermia [Unknown]
  - Asthenia [Unknown]
  - Chills [Unknown]
  - Anxiety [Unknown]
  - Meningitis cryptococcal [Recovering/Resolving]
  - Influenza like illness [Unknown]

NARRATIVE: CASE EVENT DATE: 201803
